FAERS Safety Report 8021377-4 (Version None)
Quarter: 2011Q4

REPORT INFORMATION
  Report Type: 
  Country: None (occurrence: None)
  Receive Date: 20111230
  Receipt Date: 20111230
  Transmission Date: 20120403
  Serious: No
  Sender: FDA-Public Use
  Company Number: None

PATIENT
  Age: 24 Year
  Sex: Female
  Weight: 75.2 kg

DRUGS (1)
  1. FINGOLIMOD [Suspect]
     Indication: MULTIPLE SCLEROSIS
     Dosage: 0.5 MG EVERY DAY PO
     Route: 048
     Dates: start: 20110829, end: 20111207

REACTIONS (2)
  - RASH [None]
  - OROPHARYNGEAL PAIN [None]
